FAERS Safety Report 7020178-3 (Version None)
Quarter: 2010Q3

REPORT INFORMATION
  Report Type: 
  Country: None (occurrence: None)
  Receive Date: 20100927
  Receipt Date: 20100910
  Transmission Date: 20110219
  Serious: Yes (Other)
  Sender: FDA-Public Use
  Company Number: AUR-APL-2010-01182

PATIENT
  Age: 53 Year
  Sex: Male
  Weight: 97 kg

DRUGS (6)
  1. AMOXICILLIN [Suspect]
     Dates: start: 20100406
  2. HYDROCHLOROTHIAZIDE [Suspect]
     Indication: BLOOD PRESSURE ABNORMAL
     Dosage: ORAL
     Route: 048
     Dates: start: 20100301
  3. CAVERJECT [Suspect]
     Indication: ERECTILE DYSFUNCTION
     Dosage: 20 UG
     Dates: start: 20080101
  4. CAVERJECT [Suspect]
     Indication: ERECTILE DYSFUNCTION
     Dosage: 40UG, AS NEEDED
  5. COSOPT [Suspect]
  6. PRED FORTE [Concomitant]

REACTIONS (8)
  - BLOOD PRESSURE ABNORMAL [None]
  - DIZZINESS [None]
  - DRUG EFFECT DECREASED [None]
  - PARAESTHESIA [None]
  - PENIS DEVIATION [None]
  - SINUSITIS [None]
  - TESTICULAR PAIN [None]
  - UNEVALUABLE EVENT [None]
